FAERS Safety Report 19431799 (Version 2)
Quarter: 2021Q2

REPORT INFORMATION
  Report Type: Spontaneous
  Country: AU (occurrence: AU)
  Receive Date: 20210617
  Receipt Date: 20210625
  Transmission Date: 20210717
  Serious: Yes (Life-Threatening, Hospitalization)
  Sender: FDA-Public Use
  Company Number: AU-MYLANLABS-2021M1035502

PATIENT
  Age: 40 Year
  Sex: Female

DRUGS (15)
  1. DEXAMETHASONE. [Suspect]
     Active Substance: DEXAMETHASONE
     Indication: HAEMOPHAGOCYTIC LYMPHOHISTIOCYTOSIS
  2. NIVOLUMAB [Concomitant]
     Active Substance: NIVOLUMAB
     Indication: METASTATIC MALIGNANT MELANOMA
     Dosage: 200 MILLIGRAM
     Route: 065
  3. PREGABALIN. [Concomitant]
     Active Substance: PREGABALIN
     Indication: CANCER PAIN
     Dosage: 225 MILLIGRAM, QD
     Route: 065
  4. HYDROMORPHONE [Concomitant]
     Active Substance: HYDROMORPHONE
     Indication: CANCER PAIN
     Dosage: DOSE: EQUIVALENT TO 120MG ORAL MORPHINE/DAY
     Route: 058
  5. METHYLPREDNISOLONE. [Suspect]
     Active Substance: METHYLPREDNISOLONE
     Indication: CANCER PAIN
     Dosage: 1 MILLIGRAM/KILOGRAM
     Route: 065
  6. PARACETAMOL [Concomitant]
     Active Substance: ACETAMINOPHEN
     Indication: CANCER PAIN
     Route: 048
  7. MORPHINE [Concomitant]
     Active Substance: MORPHINE
     Indication: CANCER PAIN
     Dosage: 675 MILLIGRAM, QDADMINISTERED VIA PATIENT?CONTROLLED ANALGESIA DEVICE.
     Route: 065
  8. KETOROLAC [Suspect]
     Active Substance: KETOROLAC TROMETHAMINE
     Indication: CANCER PAIN
     Dosage: 10 MILLIGRAM, QD
     Route: 042
  9. IPILIMUMAB [Concomitant]
     Active Substance: IPILIMUMAB
     Indication: METASTATIC MALIGNANT MELANOMA
     Dosage: 1 MILLIGRAM/KILOGRAM
     Route: 065
  10. METHADONE [Concomitant]
     Active Substance: METHADONE HYDROCHLORIDE
     Indication: CANCER PAIN
     Dosage: 60 MILLIGRAM, QD
     Route: 065
  11. KETAMINE [Concomitant]
     Active Substance: KETAMINE
     Indication: CANCER PAIN
     Dosage: INFUSION WAS ADMINISTERED.
     Route: 065
  12. DEXAMETHASONE. [Suspect]
     Active Substance: DEXAMETHASONE
     Indication: CANCER PAIN
     Dosage: 2 MILLIGRAM
     Route: 065
  13. METHYLPREDNISOLONE. [Suspect]
     Active Substance: METHYLPREDNISOLONE
     Indication: HAEMOPHAGOCYTIC LYMPHOHISTIOCYTOSIS
  14. KETOROLAC [Suspect]
     Active Substance: KETOROLAC TROMETHAMINE
     Indication: HAEMOPHAGOCYTIC LYMPHOHISTIOCYTOSIS
  15. FENTANYL. [Concomitant]
     Active Substance: FENTANYL
     Indication: CANCER PAIN
     Route: 060

REACTIONS (1)
  - Drug ineffective [Unknown]
